FAERS Safety Report 5429521-X (Version None)
Quarter: 2007Q3

REPORT INFORMATION
  Report Type: 
  Country: None (occurrence: None)
  Receive Date: 20070829
  Receipt Date: 20070822
  Transmission Date: 20080115
  Serious: Yes (Other)
  Sender: FDA-Public Use
  Company Number: US-JNJFOC-20070804965

PATIENT
  Age: 87 Year
  Sex: Male
  Weight: 86.18 kg

DRUGS (7)
  1. LEVAQUIN [Suspect]
     Indication: SINUS POLYP
     Route: 048
     Dates: start: 20070807, end: 20070821
  2. WARFARIN [Interacting]
     Indication: ATRIAL FIBRILLATION
     Route: 048
  3. CALCITRIOL [Concomitant]
     Indication: RENAL IMPAIRMENT
     Route: 065
  4. COZAAR [Concomitant]
     Indication: BLOOD CHOLESTEROL INCREASED
     Route: 048
  5. ALLOPURINOL [Concomitant]
     Indication: RENAL IMPAIRMENT
     Route: 048
  6. ISOSORBIDE DINITRATE [Concomitant]
     Indication: HYPERTENSION
     Route: 048
  7. ZOCOR [Concomitant]
     Indication: HYPERTENSION
     Route: 048

REACTIONS (5)
  - COAGULATION TIME PROLONGED [None]
  - DIARRHOEA [None]
  - DRUG INTERACTION [None]
  - MUSCULAR WEAKNESS [None]
  - SKIN DISCOLOURATION [None]
